FAERS Safety Report 12567434 (Version 2)
Quarter: 2016Q3

REPORT INFORMATION
  Report Type: Spontaneous
  Country: US (occurrence: US)
  Receive Date: 20160718
  Receipt Date: 20160722
  Transmission Date: 20161109
  Serious: Yes (Other)
  Sender: FDA-Public Use
  Company Number: US-PFIZER INC-2016347641

PATIENT
  Age: 37 Year
  Sex: Female
  Weight: 78 kg

DRUGS (2)
  1. LYRICA [Suspect]
     Active Substance: PREGABALIN
     Dosage: 300 MG, 2X/DAY
  2. LYRICA [Suspect]
     Active Substance: PREGABALIN
     Dosage: 150 MG, 2X/DAY
     Dates: start: 2015

REACTIONS (9)
  - Amnesia [Unknown]
  - Intentional product use issue [Unknown]
  - Tooth loss [Unknown]
  - Hyperhidrosis [Not Recovered/Not Resolved]
  - Dysgeusia [Unknown]
  - Tooth disorder [Unknown]
  - Dry mouth [Not Recovered/Not Resolved]
  - Dental caries [Not Recovered/Not Resolved]
  - Seizure [Not Recovered/Not Resolved]

NARRATIVE: CASE EVENT DATE: 2014
